FAERS Safety Report 16219084 (Version 2)
Quarter: 2019Q3

REPORT INFORMATION
  Report Type: Spontaneous
  Country: MX (occurrence: MX)
  Receive Date: 20190419
  Receipt Date: 20190731
  Transmission Date: 20191004
  Serious: Yes (Other)
  Sender: FDA-Public Use
  Company Number: MX-ANIPHARMA-2019-MX-000007

PATIENT
  Age: 63 Year
  Sex: Female
  Weight: 95 kg

DRUGS (8)
  1. INSULINA P.Z.PURIFICADA [Concomitant]
     Dosage: UNK
     Route: 058
     Dates: start: 1985
  2. OMEPRAZOL [Concomitant]
     Active Substance: OMEPRAZOLE
     Dosage: 40 MG UNK
     Route: 048
     Dates: start: 2014
  3. RANITIDINE. [Concomitant]
     Active Substance: RANITIDINE
     Dosage: 150 MG UNK
     Route: 048
     Dates: start: 2014
  4. METFORMINA ^NOVARTIS^ [Concomitant]
     Dosage: UNK
     Route: 048
     Dates: start: 1985
  5. CANDESARTAN CILEXETIL AND HYDROCHLOROTHIAZIDE [Suspect]
     Active Substance: CANDESARTAN CILEXETIL\HYDROCHLOROTHIAZIDE
     Indication: HYPERTENSION
     Dosage: 32 MG DAILY / 16 MG DAILY
     Route: 048
     Dates: start: 20190517, end: 20190719
  6. ASPIRIN. [Suspect]
     Active Substance: ASPIRIN
     Dosage: 1 DF DAILY
     Route: 048
     Dates: start: 2009, end: 20190517
  7. NO MATCH [Concomitant]
     Active Substance: UNSPECIFIED INGREDIENT
     Dosage: UNK
     Route: 065
  8. UNSPECIFIED [Suspect]
     Active Substance: UNSPECIFIED INGREDIENT
     Dosage: UNK
     Route: 065
     Dates: start: 20170417, end: 20190517

REACTIONS (7)
  - Oesophageal pain [Unknown]
  - Product dose omission [Recovered/Resolved]
  - Platelet count decreased [Recovered/Resolved]
  - Stress [Recovered/Resolved]
  - Drug interaction [Recovered/Resolved]
  - Hyperglycaemia [Recovered/Resolved]
  - Cataract [Recovered/Resolved]

NARRATIVE: CASE EVENT DATE: 2014
